FAERS Safety Report 4738541-X (Version None)
Quarter: 2005Q3

REPORT INFORMATION
  Report Type: 
  Country: None (occurrence: None)
  Receive Date: 20050809
  Receipt Date: 20050803
  Transmission Date: 20060218
  Serious: Yes (Other)
  Sender: FDA-Public Use
  Company Number: PHEH2005US08595

PATIENT
  Age: 59 Year
  Sex: Male

DRUGS (1)
  1. LAMISIL [Suspect]
     Indication: NAIL TINEA
     Dosage: UNK, QD
     Route: 048

REACTIONS (4)
  - ASTHENIA [None]
  - BLOOD TEST ABNORMAL [None]
  - LYMPHADENOPATHY [None]
  - LYMPHOMA [None]
